FAERS Safety Report 7531887-1 (Version None)
Quarter: 2011Q2

REPORT INFORMATION
  Report Type: 
  Country: None (occurrence: None)
  Receive Date: 20110608
  Receipt Date: 20110525
  Transmission Date: 20111010
  Serious: No
  Sender: FDA-Public Use
  Company Number: US-BAYER-2011-045505

PATIENT
  Sex: Female

DRUGS (1)
  1. SAFYRAL [Suspect]
     Dosage: 3MG/0.03MG/0.451MG
     Route: 048

REACTIONS (3)
  - ABNORMAL WEIGHT GAIN [None]
  - FUNGAL INFECTION [None]
  - FLUID RETENTION [None]
